FAERS Safety Report 5506955-6 (Version None)
Quarter: 2007Q4

REPORT INFORMATION
  Report Type: 
  Country: None (occurrence: None)
  Receive Date: 20071105
  Receipt Date: 20071030
  Transmission Date: 20080405
  Serious: Yes (Hospitalization, Other)
  Sender: FDA-Public Use
  Company Number: GB-ABBOTT-07P-167-0371555-00

PATIENT
  Age: 55 Year
  Sex: Female
  Weight: 60 kg

DRUGS (22)
  1. SEVOFLURANE [Suspect]
     Indication: GENERAL ANAESTHESIA
     Dosage: NOT REPORTED
     Dates: start: 20061201, end: 20061201
  2. ISOFLURANE [Interacting]
     Indication: GENERAL ANAESTHESIA
     Dosage: NOT REPORTED
     Dates: start: 20060601, end: 20060601
  3. DEXAMETHASONE TAB [Interacting]
     Indication: GENERAL ANAESTHESIA
     Dates: start: 20050701, end: 20050701
  4. DEXAMETHASONE TAB [Interacting]
     Dates: start: 20061201
  5. GABAPENTIN [Interacting]
     Indication: NEURALGIA
     Dates: start: 20050501, end: 20061211
  6. GABAPENTIN [Interacting]
  7. GABAPENTIN [Interacting]
     Indication: MUSCULOSKELETAL PAIN
  8. GABAPENTIN [Interacting]
     Indication: PAIN
  9. FENTANYL [Interacting]
     Indication: GENERAL ANAESTHESIA
     Dates: start: 20050701, end: 20061201
  10. FENTANYL [Interacting]
     Indication: OSTEOTOMY
     Dates: start: 20060601
  11. FENTANYL [Interacting]
     Dates: start: 20061201
  12. ALFENTANIL [Interacting]
     Indication: GENERAL ANAESTHESIA
     Dates: start: 20050701, end: 20050701
  13. ALFENTANIL [Interacting]
     Indication: OSTEOTOMY
  14. PROPOFOL [Interacting]
     Indication: GENERAL ANAESTHESIA
     Dates: start: 20050701, end: 20060601
  15. PROPOFOL [Interacting]
     Indication: OSTEOTOMY
     Dates: start: 20060601, end: 20060601
  16. OXYGEN [Concomitant]
     Indication: DRUG USE FOR UNKNOWN INDICATION
     Route: 055
     Dates: start: 20060601
  17. OXYGEN [Concomitant]
     Dosage: NOT REPORTED
     Route: 055
     Dates: start: 20061201
  18. DEXAMETHASONE TAB [Concomitant]
     Indication: DRUG USE FOR UNKNOWN INDICATION
     Dosage: NOT REPORTED
  19. UNSPECIFIED OPIOIDS [Concomitant]
     Indication: DRUG USE FOR UNKNOWN INDICATION
     Dosage: NOT REPORTED
  20. ACETAMINOPHEN [Concomitant]
     Indication: MUSCULOSKELETAL PAIN
     Dates: start: 20050501
  21. ACETAMINOPHEN [Concomitant]
     Indication: PAIN
  22. CODEINE SUL TAB [Concomitant]
     Indication: MUSCULOSKELETAL PAIN
     Dosage: NOT REPORTED
     Dates: start: 20050501

REACTIONS (3)
  - DRUG INTERACTION [None]
  - DYSTONIA [None]
  - MYOTONIA [None]
